FAERS Safety Report 5064147-1 (Version None)
Quarter: 2006Q3

REPORT INFORMATION
  Report Type: 
  Country: None (occurrence: None)
  Receive Date: 20060728
  Receipt Date: 20050914
  Transmission Date: 20061208
  Serious: No
  Sender: FDA-Public Use
  Company Number: ML20050469

PATIENT
  Age: 5 Month
  Sex: Male
  Weight: 7.3 kg

DRUGS (2)
  1. ZANTAC [Suspect]
     Dosage: .5ML THREE TIMES PER DAY
     Route: 048
     Dates: start: 20050501
  2. LACTULOSE [Concomitant]
     Dosage: 5ML PER DAY
     Route: 065

REACTIONS (2)
  - PHARMACEUTICAL PRODUCT COMPLAINT [None]
  - VOMITING [None]
